FAERS Safety Report 11203944 (Version 1)
Quarter: 2015Q2

REPORT INFORMATION
  Report Type: Report from Study
  Country: MX (occurrence: MX)
  Receive Date: 20150619
  Receipt Date: 20150619
  Transmission Date: 20150821
  Serious: Yes (Death, Hospitalization)
  Sender: FDA-Public Use
  Company Number: PHHY2015MX072248

PATIENT
  Age: 16 Year
  Sex: Male

DRUGS (1)
  1. NILOTINIB [Suspect]
     Active Substance: NILOTINIB
     Indication: CHRONIC MYELOID LEUKAEMIA
     Dosage: 800 MG, QD
     Route: 065
     Dates: start: 20141009, end: 20150603

REACTIONS (4)
  - No therapeutic response [Unknown]
  - Death [Fatal]
  - Generalised oedema [Unknown]
  - Blast crisis in myelogenous leukaemia [Unknown]

NARRATIVE: CASE EVENT DATE: 20150604
